FAERS Safety Report 11283517 (Version 1)
Quarter: 2015Q3

REPORT INFORMATION
  Report Type: Report from Study
  Country: US (occurrence: US)
  Receive Date: 20150720
  Receipt Date: 20150720
  Transmission Date: 20151125
  Serious: No
  Sender: FDA-Public Use
  Company Number: PHEH2015US011266

PATIENT
  Sex: Female

DRUGS (1)
  1. GILENYA [Suspect]
     Active Substance: FINGOLIMOD HYDROCHLORIDE
     Indication: MULTIPLE SCLEROSIS
     Dosage: 0.5 MG, QD
     Route: 048
     Dates: start: 201404

REACTIONS (6)
  - Urinary incontinence [Unknown]
  - Cognitive disorder [Unknown]
  - Emotional disorder [Unknown]
  - Memory impairment [Unknown]
  - Fatigue [Unknown]
  - Multiple sclerosis relapse [Unknown]
